FAERS Safety Report 13194571 (Version 1)
Quarter: 2017Q1

REPORT INFORMATION
  Report Type: Spontaneous
  Country: DE (occurrence: DE)
  Receive Date: 20170207
  Receipt Date: 20170207
  Transmission Date: 20170428
  Serious: No
  Sender: FDA-Public Use
  Company Number: DE-JAZZ-2014-DE-004256

PATIENT
  Sex: Female

DRUGS (1)
  1. PRIALT [Suspect]
     Active Substance: ZICONOTIDE ACETATE
     Indication: INTERVERTEBRAL DISC PROTRUSION
     Dosage: UNK ?G, QH
     Route: 037
     Dates: start: 2011

REACTIONS (6)
  - Tooth loss [Recovered/Resolved with Sequelae]
  - Jaw disorder [Recovered/Resolved]
  - Nausea [Not Recovered/Not Resolved]
  - Tooth disorder [Recovered/Resolved]
  - Pain in extremity [Not Recovered/Not Resolved]
  - Back pain [Not Recovered/Not Resolved]

NARRATIVE: CASE EVENT DATE: 2012
